FAERS Safety Report 10220553 (Version 1)
Quarter: 2014Q2

REPORT INFORMATION
  Report Type: Spontaneous
  Country: CN (occurrence: None)
  Receive Date: 20140604
  Receipt Date: 20140604
  Transmission Date: 20141212
  Serious: Yes (Death)
  Sender: FDA-Public Use
  Company Number: IMP_07668_2014

PATIENT
  Age: 5 Year
  Sex: Male

DRUGS (2)
  1. VALPROIC ACID (VALPROIC ACID) [Suspect]
     Indication: EPILEPSY
  2. LAMOTRIGINE (UNKNOWN) [Concomitant]

REACTIONS (10)
  - Astrocytoma [None]
  - Hepatotoxicity [None]
  - Alanine aminotransferase increased [None]
  - Aspartate aminotransferase increased [None]
  - Blood bilirubin increased [None]
  - Gamma-glutamyltransferase increased [None]
  - Bilirubin conjugated increased [None]
  - Blood albumin increased [None]
  - Ammonia increased [None]
  - Prothrombin time prolonged [None]
